FAERS Safety Report 5724354-9 (Version None)
Quarter: 2008Q2

REPORT INFORMATION
  Report Type: 
  Country: None (occurrence: None)
  Receive Date: 20080430
  Receipt Date: 20080422
  Transmission Date: 20081010
  Serious: Yes (Hospitalization, Disabling)
  Sender: FDA-Public Use
  Company Number: JP-PFIZER INC-2008029627

PATIENT
  Sex: Female
  Weight: 48 kg

DRUGS (9)
  1. VFEND [Suspect]
     Indication: BRONCHOPULMONARY ASPERGILLOSIS
     Route: 042
  2. VFEND [Suspect]
     Route: 042
  3. VFEND [Suspect]
     Route: 042
  4. ONCOVIN [Suspect]
     Indication: ACUTE LYMPHOCYTIC LEUKAEMIA
     Route: 042
     Dates: start: 20080306, end: 20080306
  5. AMBISOME [Concomitant]
     Route: 042
     Dates: start: 20080229, end: 20080320
  6. TARGOCID [Concomitant]
     Route: 042
     Dates: start: 20080320, end: 20080331
  7. BIAPENEM [Concomitant]
     Route: 042
     Dates: start: 20080310, end: 20080323
  8. NEU-UP [Concomitant]
     Route: 042
     Dates: start: 20080310, end: 20080401
  9. LANSOPRAZOLE [Concomitant]
     Route: 042
     Dates: start: 20080317, end: 20080328

REACTIONS (3)
  - BLOOD ALKALINE PHOSPHATASE INCREASED [None]
  - ILEUS PARALYTIC [None]
  - MUSCULAR WEAKNESS [None]
